FAERS Safety Report 4506402-7 (Version None)
Quarter: 2004Q4

REPORT INFORMATION
  Report Type: 
  Country: None (occurrence: None)
  Receive Date: 20041025
  Receipt Date: 20040406
  Transmission Date: 20050328
  Serious: Yes (Other)
  Sender: FDA-Public Use
  Company Number: US-JNJFOC-20040200111

PATIENT
  Age: 52 Year
  Sex: Female
  Weight: 94.8018 kg

DRUGS (13)
  1. REMICADE [Suspect]
     Indication: CROHN'S DISEASE
     Dosage: 500 MG, 1 IN 1 DAY, INTRAVENOUS
     Route: 042
     Dates: start: 20031004, end: 20031004
  2. REMICADE [Suspect]
     Indication: CROHN'S DISEASE
     Dosage: 500 MG, 1 IN 1 DAY, INTRAVENOUS
     Route: 042
     Dates: start: 20040101, end: 20040101
  3. HYDROCORTISONE [Concomitant]
  4. PLACQUENIL (HYDROXYCHLOROQUINE PHOSPHATE [Concomitant]
  5. SINGULAIR [Concomitant]
  6. TYLENOL [Concomitant]
  7. ALLEGA (FEXOFENADINE HYDROCHLORIDE) [Concomitant]
  8. FLOVENT [Concomitant]
  9. SEREVENT [Concomitant]
  10. LEXAPRO [Concomitant]
  11. ASACOL [Concomitant]
  12. PURINETHOL [Concomitant]
  13. PREVACID [Concomitant]

REACTIONS (1)
  - BRADYCARDIA [None]
